FAERS Safety Report 16672562 (Version 2)
Quarter: 2019Q3

REPORT INFORMATION
  Report Type: Report from Study
  Country: AU (occurrence: AU)
  Receive Date: 20190806
  Receipt Date: 20190917
  Transmission Date: 20191004
  Serious: Yes (Hospitalization)
  Sender: FDA-Public Use
  Company Number: AU-REGENERON PHARMACEUTICALS, INC.-2019-39821

PATIENT

DRUGS (3)
  1. EYLEA [Suspect]
     Active Substance: AFLIBERCEPT
     Indication: NEOVASCULAR AGE-RELATED MACULAR DEGENERATION
     Dosage: LEFT EYE, EVERY EIGHT OR NINE WEEKS
     Route: 031
     Dates: start: 201001
  2. FUROSEMIDE. [Concomitant]
     Active Substance: FUROSEMIDE
     Indication: PRODUCT USED FOR UNKNOWN INDICATION
     Dosage: UNK
  3. FUROSEMIDE. [Concomitant]
     Active Substance: FUROSEMIDE
     Dosage: 40 MG, BID, DOSE INCREASED DUE TO KIDNEY DISORDER OCCURRED AS PER HEART EVENTS

REACTIONS (6)
  - Myocardial infarction [Recovering/Resolving]
  - Lung disorder [Unknown]
  - Visual impairment [Not Recovered/Not Resolved]
  - Renal disorder [Unknown]
  - Cardiac disorder [Recovered/Resolved with Sequelae]
  - Liver disorder [Recovered/Resolved]

NARRATIVE: CASE EVENT DATE: 20190615
